FAERS Safety Report 5632334-7 (Version None)
Quarter: 2008Q1

REPORT INFORMATION
  Report Type: 
  Country: None (occurrence: None)
  Receive Date: 20080220
  Receipt Date: 20080215
  Transmission Date: 20080703
  Serious: Yes (Other)
  Sender: FDA-Public Use
  Company Number: GB-ASTRAZENECA-2008GB00290

PATIENT
  Age: 70 Year
  Sex: Male
  Weight: 95 kg

DRUGS (12)
  1. LISINOPRIL [Suspect]
     Route: 048
     Dates: start: 20080110, end: 20080121
  2. RAMIPRIL [Suspect]
     Route: 048
     Dates: start: 20071210, end: 20080110
  3. ADALAT [Concomitant]
     Route: 048
     Dates: start: 20041101
  4. ASPIRIN [Concomitant]
     Route: 048
     Dates: start: 20040323
  5. BENDROFLUMETHIAZIDE [Concomitant]
     Route: 048
     Dates: start: 20040817
  6. CHONDROITIN [Concomitant]
     Route: 048
     Dates: start: 20070524
  7. GLUCOSAMINE [Concomitant]
     Route: 048
     Dates: start: 20070524
  8. ACETAMINOPHEN [Concomitant]
     Route: 048
     Dates: start: 20070524
  9. PERINDOPRIL [Concomitant]
     Route: 048
     Dates: start: 20041116, end: 20071210
  10. QVAR 40 [Concomitant]
     Route: 055
     Dates: start: 20070524
  11. SILDENAFIL CITRATE [Concomitant]
     Route: 048
     Dates: start: 20070719
  12. SIMVASTATIN [Concomitant]
     Route: 048
     Dates: start: 20070621

REACTIONS (5)
  - CHEST PAIN [None]
  - CONFUSIONAL STATE [None]
  - DRY MOUTH [None]
  - FATIGUE [None]
  - MOOD SWINGS [None]
